FAERS Safety Report 21332378 (Version 1)
Quarter: 2022Q3

REPORT INFORMATION
  Report Type: Spontaneous
  Country: FR (occurrence: IE)
  Receive Date: 20220914
  Receipt Date: 20220914
  Transmission Date: 20221027
  Serious: Yes (Other)
  Sender: FDA-Public Use
  Company Number: FR-Accord-263885

PATIENT
  Age: 63 Year
  Sex: Male
  Weight: 177 kg

DRUGS (9)
  1. FLUOROURACIL [Suspect]
     Active Substance: FLUOROURACIL
     Dosage: UNK
     Dates: start: 20211202, end: 20220630
  2. IRINOTECAN HYDROCHLORIDE [Suspect]
     Active Substance: IRINOTECAN HYDROCHLORIDE
     Dosage: UNK
     Dates: start: 20211202, end: 20220630
  3. OXALIPLATIN [Suspect]
     Active Substance: OXALIPLATIN
     Dosage: 170 MG, INFUSION WITHIN 2 HOURS
     Dates: start: 20211202, end: 20220630
  4. INSULIN DEGLUDEC [Concomitant]
     Active Substance: INSULIN DEGLUDEC
     Dosage: 15 IU IN THE EVENING
  5. VORTIOXETINE [Concomitant]
     Active Substance: VORTIOXETINE
     Dosage: 15 MG IN THE EVENING
  6. SIMVASTATIN [Concomitant]
     Active Substance: SIMVASTATIN
     Dosage: 20 MG IN THE EVENING
  7. VERAPAMIL HYDROCHLORIDE [Concomitant]
     Active Substance: VERAPAMIL HYDROCHLORIDE
     Dosage: 120 MG IN THE MORNING AND 120 MG IN THE EVENING
  8. CANDESARTAN CILEXETIL\HYDROCHLOROTHIAZIDE [Concomitant]
     Active Substance: CANDESARTAN CILEXETIL\HYDROCHLOROTHIAZIDE
     Dosage: 16 MG IN THE EVENING
  9. NOVORAPID [Concomitant]
     Active Substance: INSULIN ASPART
     Dosage: 5 IU IN THE MORNING, 4 AT NOON AND 4 IN THE EVENING

REACTIONS (9)
  - Hot flush [Unknown]
  - Nausea [Recovered/Resolved]
  - Vomiting [Recovered/Resolved]
  - Asthenia [Recovered/Resolved]
  - Neuropathy peripheral [Recovered/Resolved]
  - Off label use [Unknown]
  - Haemoglobin decreased [Unknown]
  - Platelet count decreased [Unknown]
  - Neutrophil count decreased [Unknown]

NARRATIVE: CASE EVENT DATE: 20220127
